FAERS Safety Report 7992869-9 (Version None)
Quarter: 2011Q4

REPORT INFORMATION
  Report Type: 
  Country: None (occurrence: None)
  Receive Date: 20111219
  Receipt Date: 20110714
  Transmission Date: 20120403
  Serious: No
  Sender: FDA-Public Use
  Company Number: US-ASTRAZENECA-2011SE42253

PATIENT
  Age: 66 Year
  Sex: Female
  Weight: 65.8 kg

DRUGS (6)
  1. FISH OIL [Concomitant]
  2. CO Q10 [Concomitant]
     Indication: NUTRITIONAL SUPPORT
  3. CRESTOR [Suspect]
     Dosage: 5 MG DAILY, THREE TIMES A WEEK
     Route: 048
  4. GLUCOSAMINE [Concomitant]
     Indication: NUTRITIONAL SUPPORT
  5. PREMARIN [Concomitant]
  6. CALCIUM WITH VITAMIN D [Concomitant]
     Indication: BONE DISORDER

REACTIONS (2)
  - DRUG PRESCRIBING ERROR [None]
  - PAIN [None]
